FAERS Safety Report 4666245-0 (Version None)
Quarter: 2005Q2

REPORT INFORMATION
  Report Type: 
  Country: None (occurrence: None)
  Receive Date: 20050518
  Receipt Date: 20050518
  Transmission Date: 20051028
  Serious: Yes (Hospitalization)
  Sender: FDA-Public Use
  Company Number: None

PATIENT
  Age: 46 Year
  Sex: Male
  Weight: 74.3899 kg

DRUGS (3)
  1. LAMICTAL [Suspect]
     Indication: BIPOLAR DISORDER
     Dosage: 100 MG PO BID
     Route: 048
     Dates: start: 20040520, end: 20050421
  2. RESTORIL [Concomitant]
  3. SEROQUEL [Concomitant]

REACTIONS (2)
  - DRUG DOSE OMISSION [None]
  - GRAND MAL CONVULSION [None]
